FAERS Safety Report 4391924-2 (Version None)
Quarter: 2004Q3

REPORT INFORMATION
  Report Type: 
  Country: None (occurrence: None)
  Receive Date: 20040701
  Receipt Date: 20040618
  Transmission Date: 20050211
  Serious: Yes (Hospitalization)
  Sender: FDA-Public Use
  Company Number: 2004US000595

PATIENT
  Age: 19 Year
  Sex: Male
  Weight: 90 kg

DRUGS (10)
  1. PROGRAF [Suspect]
     Indication: RENAL TRANSPLANT
     Dosage: SEE IMAGE
     Route: 048
     Dates: start: 20020101
  2. PROGRAF [Suspect]
     Indication: RENAL TRANSPLANT
     Dosage: SEE IMAGE
     Route: 048
     Dates: start: 20040101
  3. PROTONIX [Suspect]
     Dates: start: 20040501
  4. ORTHOCLONE OKT3 [Concomitant]
  5. SOLU-MEDROL [Concomitant]
  6. OCTREOTIDE ACETATE [Concomitant]
  7. CELLCEPT [Concomitant]
  8. HYDROCORTISONE [Concomitant]
  9. ESCITALOPRAM (LEXAPRO) (ESCITALOPRAM) [Concomitant]
  10. BACTRIM [Concomitant]

REACTIONS (5)
  - DRUG INTERACTION [None]
  - DRUG LEVEL INCREASED [None]
  - EPSTEIN-BARR VIRUS ANTIBODY POSITIVE [None]
  - GASTROINTESTINAL HAEMORRHAGE [None]
  - KIDNEY TRANSPLANT REJECTION [None]
